FAERS Safety Report 5520226-3 (Version None)
Quarter: 2007Q4

REPORT INFORMATION
  Report Type: 
  Country: None (occurrence: None)
  Receive Date: 20071116
  Receipt Date: 20071105
  Transmission Date: 20080405
  Serious: Yes (Hospitalization)
  Sender: FDA-Public Use
  Company Number: FR-MERCK-0711USA02949

PATIENT
  Age: 72 Year
  Sex: Male

DRUGS (9)
  1. ZOCOR [Suspect]
     Indication: DYSLIPIDAEMIA
     Route: 048
  2. PREVISCAN [Suspect]
     Indication: DEEP VEIN THROMBOSIS
     Route: 048
     Dates: start: 20070827, end: 20070905
  3. ALLOPURINOL [Suspect]
     Indication: HYPERURICAEMIA
     Route: 048
  4. LERCAN [Concomitant]
     Indication: HYPERTENSION
     Route: 048
  5. STABLON [Concomitant]
     Route: 048
  6. METFORMIN HCL [Concomitant]
     Indication: TYPE 2 DIABETES MELLITUS
     Route: 048
  7. IRBESARTAN [Concomitant]
     Indication: HYPERTENSION
     Route: 048
  8. GAVISCON ANTACID TABLETS [Concomitant]
     Route: 048
  9. INEXIUM [Concomitant]
     Indication: GASTRODUODENAL ULCER
     Route: 048

REACTIONS (3)
  - ANAEMIA [None]
  - MELAENA [None]
  - RECTAL HAEMORRHAGE [None]
